FAERS Safety Report 9717210 (Version 9)
Quarter: 2025Q1

REPORT INFORMATION
  Report Type: Spontaneous
  Country: US (occurrence: US)
  Receive Date: 20131127
  Receipt Date: 20250128
  Transmission Date: 20250409
  Serious: Yes (Hospitalization)
  Sender: JOHNSON AND JOHNSON
  Company Number: US-JNJFOC-20131114233

PATIENT

DRUGS (5)
  1. INFLIXIMAB [Suspect]
     Active Substance: INFLIXIMAB
     Indication: Crohn^s disease
     Route: 041
  2. MERCAPTOPURINE [Suspect]
     Active Substance: MERCAPTOPURINE
     Indication: Product used for unknown indication
     Route: 065
  3. AZATHIOPRINE [Suspect]
     Active Substance: AZATHIOPRINE
     Indication: Product used for unknown indication
     Route: 065
  4. METHOTREXATE [Suspect]
     Active Substance: METHOTREXATE
     Indication: Product used for unknown indication
     Route: 065
  5. ACETAMINOPHEN [Concomitant]
     Active Substance: ACETAMINOPHEN
     Indication: Premedication
     Route: 065

REACTIONS (29)
  - Respiratory tract infection [Unknown]
  - Systemic mycosis [Unknown]
  - Abscess [Unknown]
  - Infection [Unknown]
  - Autoimmune disorder [Unknown]
  - Drug ineffective [Unknown]
  - Skin infection [Unknown]
  - Device related infection [Unknown]
  - Device related infection [Unknown]
  - Bacterial diarrhoea [Unknown]
  - Anal abscess [Unknown]
  - Lupus-like syndrome [Unknown]
  - Viral infection [Unknown]
  - Pneumonia [Unknown]
  - Off label use [Unknown]
  - Dermatitis [Unknown]
  - Palpitations [Unknown]
  - Infusion related reaction [Recovered/Resolved]
  - Fungal infection [Unknown]
  - Coxsackie viral infection [Unknown]
  - Drug specific antibody [Unknown]
  - Incorrect dose administered [Unknown]
  - Drug level decreased [Unknown]
  - Herpes zoster [Unknown]
  - Genital infection female [Unknown]
  - Sinusitis [Unknown]
  - Urinary tract infection [Unknown]
  - Stridor [Unknown]
  - Infusion related reaction [Recovered/Resolved]
